FAERS Safety Report 17324381 (Version 1)
Quarter: 2020Q1

REPORT INFORMATION
  Report Type: Spontaneous
  Country: US (occurrence: US)
  Receive Date: 20200127
  Receipt Date: 20200127
  Transmission Date: 20200409
  Serious: No
  Sender: FDA-Public Use
  Company Number: US-009507513-2001USA004806

PATIENT
  Age: 3 Decade

DRUGS (3)
  1. GABAPENTIN. [Suspect]
     Active Substance: GABAPENTIN
     Indication: COMPLEX REGIONAL PAIN SYNDROME
     Dosage: 400 MILLIGRAM, THREE TIMES DAILY
     Route: 048
  2. KETAMINE [Suspect]
     Active Substance: KETAMINE
     Indication: COMPLEX REGIONAL PAIN SYNDROME
     Dosage: 8 ML/HOUR FOR 24 HOURS
  3. FOSAMAX [Suspect]
     Active Substance: ALENDRONATE SODIUM
     Indication: COMPLEX REGIONAL PAIN SYNDROME
     Dosage: 40 MILLIGRAM, DAILY
     Route: 048

REACTIONS (1)
  - Off label use [Unknown]
